FAERS Safety Report 5742220-X (Version None)
Quarter: 2008Q2

REPORT INFORMATION
  Report Type: 
  Country: None (occurrence: None)
  Receive Date: 20080519
  Receipt Date: 20080509
  Transmission Date: 20081010
  Serious: Yes (Other)
  Sender: FDA-Public Use
  Company Number: PHHO2007FR12711

PATIENT
  Age: 44 Year
  Sex: Male

DRUGS (8)
  1. LAMIVUDINE [Concomitant]
     Indication: HEPATITIS B
  2. TELBIVUDINE (LDT) [Suspect]
     Indication: HEPATITIS B
     Dosage: 600 MG,
     Route: 048
     Dates: start: 20050831, end: 20070522
  3. BETAHISTINE [Concomitant]
     Indication: VERTIGO
  4. BETAINE [Concomitant]
     Indication: ABDOMINAL PAIN
  5. ACETYLLEUCINE [Concomitant]
     Indication: VERTIGO
  6. CALCIUM D3 [Concomitant]
     Indication: MYALGIA
  7. MAGNESIUM [Concomitant]
     Indication: MYALGIA
  8. ADEFOVIR DIPIVOXIL KIT [Concomitant]
     Indication: HEPATITIS B

REACTIONS (6)
  - ASPARTATE AMINOTRANSFERASE INCREASED [None]
  - BLOOD CREATINE PHOSPHOKINASE INCREASED [None]
  - MITOCHONDRIAL MYOPATHY [None]
  - MUSCLE NECROSIS [None]
  - MYALGIA [None]
  - PAIN [None]
